FAERS Safety Report 14448126 (Version 4)
Quarter: 2018Q2

REPORT INFORMATION
  Report Type: Spontaneous
  Country: US (occurrence: US)
  Receive Date: 20180126
  Receipt Date: 20180418
  Transmission Date: 20180711
  Serious: Yes (Hospitalization)
  Sender: FDA-Public Use
  Company Number: PHEH2018US002470

PATIENT
  Sex: Female

DRUGS (1)
  1. NEO AND POLY B SULFATES + HYDROCORTISONE [Suspect]
     Active Substance: BACITRACIN\NEOMYCIN\POLYMYXIN B
     Indication: EAR INFECTION
     Route: 001

REACTIONS (13)
  - Furuncle [Unknown]
  - Vertigo [Unknown]
  - Feeling hot [Unknown]
  - Emotional distress [Unknown]
  - Pain [Unknown]
  - Headache [Unknown]
  - Otorrhoea [Unknown]
  - Ear infection bacterial [Unknown]
  - Peripheral swelling [Unknown]
  - Ear infection fungal [Unknown]
  - Hypoacusis [Unknown]
  - Blister [Unknown]
  - Skin discolouration [Unknown]
